FAERS Safety Report 21830679 (Version 7)
Quarter: 2023Q4

REPORT INFORMATION
  Report Type: Report from Study
  Country: CN (occurrence: CN)
  Receive Date: 20230106
  Receipt Date: 20231003
  Transmission Date: 20240110
  Serious: Yes (Other)
  Sender: FDA-Public Use
  Company Number: CN-KYOWAKIRIN-2022AKK000737

PATIENT

DRUGS (13)
  1. BUROSUMAB [Suspect]
     Active Substance: BUROSUMAB
     Indication: Hereditary hypophosphataemic rickets
     Dosage: 20 MG, 1X/2 WEEKS
     Route: 065
     Dates: start: 20220721, end: 20220818
  2. BUROSUMAB [Suspect]
     Active Substance: BUROSUMAB
     Dosage: 30 MG, 1X/2 WEEKS
     Route: 065
     Dates: start: 20220829, end: 20221208
  3. BUROSUMAB [Suspect]
     Active Substance: BUROSUMAB
     Dosage: 30 MG, 1X/WEEK
     Route: 065
     Dates: start: 20221229, end: 20230105
  4. BUROSUMAB [Suspect]
     Active Substance: BUROSUMAB
     Dosage: 40 MG, 1X/2 WEEKS
     Route: 065
     Dates: start: 20230117, end: 20230828
  5. BUROSUMAB [Suspect]
     Active Substance: BUROSUMAB
     Dosage: 40 MG, 1X/2 WEEKS
     Route: 065
     Dates: start: 20230911
  6. HERBAL NOS [Concomitant]
     Active Substance: HERBALS
     Indication: Upper respiratory tract infection
     Dosage: UNK
     Route: 048
     Dates: start: 20220926, end: 20220927
  7. HERBAL NOS [Concomitant]
     Active Substance: HERBALS
     Dosage: UNK
     Route: 048
     Dates: start: 20230516, end: 20230516
  8. HERBAL NOS [Concomitant]
     Active Substance: HERBALS
     Indication: Dyspepsia
     Dosage: UNK
     Route: 048
     Dates: start: 20220926, end: 20220926
  9. HERBAL NOS [Concomitant]
     Active Substance: HERBALS
     Indication: COVID-19
     Dosage: UNK
     Route: 048
     Dates: start: 20221224, end: 20221224
  10. IBUPROFEN [Concomitant]
     Active Substance: IBUPROFEN
     Indication: COVID-19
     Dosage: UNK
     Route: 048
     Dates: start: 20221224, end: 20221224
  11. HERBAL NOS [Concomitant]
     Active Substance: HERBALS
     Indication: COVID-19
     Dosage: UNK
     Route: 048
     Dates: start: 20221224, end: 20221224
  12. HERBAL NOS [Concomitant]
     Active Substance: HERBALS
     Indication: COVID-19
     Dosage: UNK
     Route: 048
     Dates: start: 20221224, end: 20221225
  13. POLYSACCHARIDE MENINGOCOCCAL A AND C VACCINE [Concomitant]
     Indication: Prophylaxis
     Dosage: UNK
     Route: 042
     Dates: start: 20230218, end: 20230218

REACTIONS (15)
  - Nephrolithiasis [Not Recovered/Not Resolved]
  - Upper respiratory tract infection [Recovered/Resolved]
  - Vitamin D deficiency [Recovered/Resolved]
  - Vitamin D deficiency [Not Recovered/Not Resolved]
  - Upper respiratory tract infection [Recovered/Resolved]
  - Dyspepsia [Recovered/Resolved]
  - COVID-19 [Recovered/Resolved]
  - Upper respiratory tract infection [Recovered/Resolved]
  - Abdominal distension [Recovered/Resolved]
  - Cough [Recovered/Resolved]
  - Gingival swelling [Recovered/Resolved]
  - Renal cyst [Recovered/Resolved]
  - Upper respiratory tract infection [Recovered/Resolved]
  - Upper respiratory tract infection [Recovered/Resolved]
  - Vitamin D deficiency [Recovered/Resolved]

NARRATIVE: CASE EVENT DATE: 20211213
